FAERS Safety Report 16746393 (Version 1)
Quarter: 2019Q3

REPORT INFORMATION
  Report Type: Spontaneous
  Country: CN (occurrence: CN)
  Receive Date: 20190827
  Receipt Date: 20190827
  Transmission Date: 20191005
  Serious: Yes (Other)
  Sender: FDA-Public Use
  Company Number: CN-JNJFOC-20190825342

PATIENT
  Age: 49 Year
  Sex: Female
  Weight: 64 kg

DRUGS (4)
  1. TOPAMAX [Suspect]
     Active Substance: TOPIRAMATE
     Indication: HEADACHE
     Route: 048
     Dates: start: 20190610, end: 20190814
  2. FLUNARIZINE CAPSULE [Suspect]
     Active Substance: FLUNARIZINE
     Indication: HEADACHE
     Route: 048
     Dates: start: 20190610, end: 20190814
  3. NIFEDIPINE. [Suspect]
     Active Substance: NIFEDIPINE
     Indication: HEADACHE
     Route: 048
     Dates: start: 20190610, end: 20190814
  4. CLARITHROMYCIN. [Suspect]
     Active Substance: CLARITHROMYCIN
     Indication: PRODUCT USED FOR UNKNOWN INDICATION
     Route: 048
     Dates: start: 20190731, end: 20190731

REACTIONS (2)
  - Pelvic inflammatory disease [Unknown]
  - Muscle spasms [Recovered/Resolved]

NARRATIVE: CASE EVENT DATE: 20190731
